FAERS Safety Report 4392173-4 (Version None)
Quarter: 2004Q3

REPORT INFORMATION
  Report Type: 
  Country: None (occurrence: None)
  Receive Date: 20040702
  Receipt Date: 20040329
  Transmission Date: 20050211
  Serious: Yes (Other)
  Sender: FDA-Public Use
  Company Number: 2004UW06070

PATIENT
  Age: 71 Year
  Sex: Female
  Weight: 72.5755 kg

DRUGS (2)
  1. CRESTOR [Suspect]
     Indication: BLOOD CHOLESTEROL INCREASED
     Dosage: NI
     Dates: start: 20040301
  2. INDERAL [Concomitant]

REACTIONS (1)
  - NERVOUSNESS [None]
